FAERS Safety Report 20641406 (Version 2)
Quarter: 2022Q2

REPORT INFORMATION
  Report Type: Spontaneous
  Country: FI (occurrence: FI)
  Receive Date: 20220328
  Receipt Date: 20220510
  Transmission Date: 20220721
  Serious: Yes (Other)
  Sender: FDA-Public Use
  Company Number: FI-NOVOPROD-901388

PATIENT
  Age: 52 Year
  Sex: Male
  Weight: 134 kg

DRUGS (2)
  1. SAXENDA [Suspect]
     Active Substance: LIRAGLUTIDE
     Indication: Obesity
     Dosage: 0.6 MG/ML, QD
     Route: 058
     Dates: start: 202202
  2. SAXENDA [Suspect]
     Active Substance: LIRAGLUTIDE
     Dosage: INCREASED ACCORDING TO APPROVED INSTRUCTIONS
     Route: 058

REACTIONS (2)
  - Biliary colic [Recovered/Resolved]
  - Cholecystitis [Recovered/Resolved]

NARRATIVE: CASE EVENT DATE: 20220225
